FAERS Safety Report 8632909 (Version 4)
Quarter: 2013Q1

REPORT INFORMATION
  Report Type: Spontaneous
  Country: GB (occurrence: GB)
  Receive Date: 20120625
  Receipt Date: 20130301
  Transmission Date: 20140127
  Serious: Yes (Other)
  Sender: FDA-Public Use
  Company Number: PHFR2006GB03710

PATIENT
  Sex: Male

DRUGS (3)
  1. CLOZARIL [Suspect]
     Indication: SCHIZOPHRENIA
     Route: 048
     Dates: start: 20030723
  2. CLOZARIL [Suspect]
     Dosage: 550 MG, QD
     Route: 048
     Dates: start: 20061115, end: 20061218
  3. VALPROATE SODIUM [Concomitant]

REACTIONS (5)
  - Urinary tract infection [Unknown]
  - Convulsion [Unknown]
  - White blood cell count decreased [Recovered/Resolved]
  - Neutrophil count decreased [Recovered/Resolved]
  - Platelet count decreased [Not Recovered/Not Resolved]
